FAERS Safety Report 9388085 (Version 1)
Quarter: 2013Q3

REPORT INFORMATION
  Report Type: Spontaneous
  Country: US (occurrence: US)
  Receive Date: 20130708
  Receipt Date: 20130708
  Transmission Date: 20140515
  Serious: Yes (Hospitalization, Other)
  Sender: FDA-Public Use
  Company Number: US-TEVA-416900USA

PATIENT
  Age: 57 Year
  Sex: Female

DRUGS (1)
  1. ALENDRONIC ACID [Suspect]
     Indication: OSTEOPOROSIS
     Dosage: 70MG WEEKLY
     Route: 048

REACTIONS (2)
  - Foreign body aspiration [Recovering/Resolving]
  - Tracheobronchitis [Recovering/Resolving]
